FAERS Safety Report 6244399-2 (Version None)
Quarter: 2009Q2

REPORT INFORMATION
  Report Type: 
  Country: None (occurrence: None)
  Receive Date: 20090623
  Receipt Date: 20090623
  Transmission Date: 20091009
  Serious: Yes (Disabling, Other)
  Sender: FDA-Public Use
  Company Number: None

PATIENT
  Age: 52 Year
  Sex: Female
  Weight: 59.8748 kg

DRUGS (4)
  1. TRANSDERM SCOP [Suspect]
     Indication: BREAST LUMP REMOVAL
     Dosage: 1 SIZE 3 CONTINUOUS DAYS TRANSDERM
     Route: 062
     Dates: start: 20090514, end: 20090517
  2. TRANSDERM SCOP [Suspect]
     Indication: DRUG HYPERSENSITIVITY
     Dosage: 1 SIZE 3 CONTINUOUS DAYS TRANSDERM
     Route: 062
     Dates: start: 20090514, end: 20090517
  3. SYNTHROID [Concomitant]
  4. CYTOMEL [Concomitant]

REACTIONS (9)
  - AFFECTIVE DISORDER [None]
  - AGEUSIA [None]
  - ANXIETY [None]
  - DYSGEUSIA [None]
  - FATIGUE [None]
  - FEELING ABNORMAL [None]
  - HEADACHE [None]
  - HYPOPHAGIA [None]
  - TONGUE DRY [None]
